FAERS Safety Report 17536081 (Version 1)
Quarter: 2020Q1

REPORT INFORMATION
  Report Type: Spontaneous
  Country: US (occurrence: US)
  Receive Date: 20200313
  Receipt Date: 20200313
  Transmission Date: 20200409
  Serious: No
  Sender: FDA-Public Use
  Company Number: US-ALEXION PHARMACEUTICALS INC.-A202001891

PATIENT
  Sex: Female
  Weight: 109 kg

DRUGS (1)
  1. ULTOMIRIS [Suspect]
     Active Substance: RAVULIZUMAB-CWVZ
     Indication: PAROXYSMAL NOCTURNAL HAEMOGLOBINURIA
     Dosage: 3600 MG ,Q8W
     Route: 065

REACTIONS (2)
  - Fatigue [Unknown]
  - Laboratory test abnormal [Unknown]
